FAERS Safety Report 5510171-1 (Version None)
Quarter: 2007Q4

REPORT INFORMATION
  Report Type: 
  Country: None (occurrence: None)
  Receive Date: 20071108
  Receipt Date: 20070202
  Transmission Date: 20080405
  Serious: Yes (Other)
  Sender: FDA-Public Use
  Company Number: US-ASTRAZENECA-2007UW02633

PATIENT
  Age: 81 Year
  Sex: Male
  Weight: 76.4 kg

DRUGS (8)
  1. PRILOSEC OTC [Suspect]
     Indication: GASTROOESOPHAGEAL REFLUX DISEASE
     Route: 048
     Dates: start: 20061108, end: 20061118
  2. PRILOSEC OTC [Suspect]
     Route: 048
     Dates: start: 20061108, end: 20061118
  3. ZOCOR [Concomitant]
  4. LASIX [Concomitant]
  5. ASPIRIN [Concomitant]
  6. SYNTHROID [Concomitant]
  7. COREG [Concomitant]
     Dosage: 12.5 MG 1/2 TABLET TWO TIMES DAILY
  8. ATACAND [Concomitant]
     Route: 048

REACTIONS (1)
  - OEDEMA PERIPHERAL [None]
